FAERS Safety Report 7437481-5 (Version None)
Quarter: 2011Q2

REPORT INFORMATION
  Report Type: 
  Country: None (occurrence: None)
  Receive Date: 20110426
  Receipt Date: 20110414
  Transmission Date: 20111010
  Serious: Yes (Hospitalization, Other)
  Sender: FDA-Public Use
  Company Number: PHBS2008DK01966

PATIENT
  Sex: Female

DRUGS (4)
  1. ACLASTA [Suspect]
     Indication: OSTEOPOROSIS
     Dosage: 5 MG IN 100 ML NACL
     Route: 042
     Dates: start: 20080121, end: 20080121
  2. ACLASTA [Suspect]
     Dosage: 5 MG
     Route: 042
     Dates: start: 20091101
  3. ACLASTA [Suspect]
     Dosage: UNK
     Route: 042
     Dates: start: 20081201
  4. ACLASTA [Suspect]
     Dosage: UNK
     Dates: start: 20101206

REACTIONS (19)
  - INFLUENZA LIKE ILLNESS [None]
  - CHILLS [None]
  - HYPOCALCAEMIA [None]
  - PAIN IN EXTREMITY [None]
  - PAIN IN JAW [None]
  - MYALGIA [None]
  - TREMOR [None]
  - MUSCLE RIGIDITY [None]
  - HEADACHE [None]
  - DISCOMFORT [None]
  - BURNING SENSATION [None]
  - ARTHRALGIA [None]
  - PYREXIA [None]
  - BONE PAIN [None]
  - EYE PAIN [None]
  - SYNCOPE [None]
  - MUSCLE SPASMS [None]
  - CONVULSION [None]
  - DIZZINESS [None]
